FAERS Safety Report 16218510 (Version 2)
Quarter: 2019Q2

REPORT INFORMATION
  Report Type: Spontaneous
  Country: US (occurrence: US)
  Receive Date: 20190419
  Receipt Date: 20190423
  Transmission Date: 20190711
  Serious: Yes (Other)
  Sender: FDA-Public Use
  Company Number: US-GILEAD-2019-0402752

PATIENT
  Age: 63 Year
  Sex: Male

DRUGS (6)
  1. ALEVE [Concomitant]
     Active Substance: NAPROXEN SODIUM
  2. MINERAL OIL. [Concomitant]
     Active Substance: MINERAL OIL
  3. HARVONI [Suspect]
     Active Substance: LEDIPASVIR\SOFOSBUVIR
     Indication: CHRONIC HEPATITIS C
     Dosage: UNK
     Route: 065
     Dates: start: 201606
  4. CALM PLUS [Concomitant]
  5. PANTOPRAZOLE SODIUM. [Concomitant]
     Active Substance: PANTOPRAZOLE SODIUM
  6. SPIRONOLACTONE. [Concomitant]
     Active Substance: SPIRONOLACTONE

REACTIONS (6)
  - Neoplasm progression [Unknown]
  - Chromaturia [Unknown]
  - Hepatic cancer [Unknown]
  - Treatment failure [Unknown]
  - Hepatitis C [Not Recovered/Not Resolved]
  - Jaundice [Unknown]
